FAERS Safety Report 4346175-4 (Version None)
Quarter: 2004Q2

REPORT INFORMATION
  Report Type: 
  Country: None (occurrence: None)
  Receive Date: 20040423
  Receipt Date: 20040423
  Transmission Date: 20050107
  Serious: Yes (Other)
  Sender: FDA-Public Use
  Company Number: None

PATIENT
  Sex: Male

DRUGS (3)
  1. CLARINEX [Suspect]
     Indication: RHINITIS ALLERGIC
     Dosage: 5 MG QD
     Dates: start: 20020201
  2. FLONASE [Suspect]
     Dosage: 1-2 PUFFS QD EACH NOSTRIL
     Dates: start: 20030301, end: 20040301
  3. IBUPROFEN [Concomitant]

REACTIONS (1)
  - HALLUCINATION [None]
